FAERS Safety Report 19036547 (Version 1)
Quarter: 2021Q1

REPORT INFORMATION
  Report Type: Spontaneous
  Country: CN (occurrence: CN)
  Receive Date: 20210322
  Receipt Date: 20210322
  Transmission Date: 20210420
  Serious: Yes (Other)
  Sender: FDA-Public Use
  Company Number: CN-ROCHE-2787481

PATIENT
  Age: 32 Year
  Sex: Female

DRUGS (18)
  1. HERCEPTIN [Suspect]
     Active Substance: TRASTUZUMAB
     Indication: BREAST CANCER
     Route: 065
  2. PERJETA [Suspect]
     Active Substance: PERTUZUMAB
     Route: 065
  3. HERCEPTIN [Suspect]
     Active Substance: TRASTUZUMAB
     Route: 065
     Dates: start: 20200704
  4. PERJETA [Suspect]
     Active Substance: PERTUZUMAB
     Indication: BREAST CANCER
     Route: 065
  5. PERJETA [Suspect]
     Active Substance: PERTUZUMAB
     Route: 065
     Dates: start: 20200223
  6. PACLITAXEL. [Concomitant]
     Active Substance: PACLITAXEL
     Indication: BREAST CANCER
  7. ERIBULIN [Concomitant]
     Active Substance: ERIBULIN
     Indication: BREAST CANCER
     Dosage: ON DAY 1 AND DAY 8 EVERY 21 DAYS
     Dates: start: 20200704
  8. ZOLEDRONIC [Concomitant]
     Active Substance: ZOLEDRONIC ACID
     Indication: BREAST CANCER
  9. DOCETAXEL. [Concomitant]
     Active Substance: DOCETAXEL
     Indication: BREAST CANCER
     Dates: start: 20200223
  10. HERCEPTIN [Suspect]
     Active Substance: TRASTUZUMAB
     Route: 065
  11. PERJETA [Suspect]
     Active Substance: PERTUZUMAB
     Route: 065
     Dates: start: 20200405
  12. HERCEPTIN [Suspect]
     Active Substance: TRASTUZUMAB
     Route: 065
     Dates: start: 20200223
  13. HERCEPTIN [Suspect]
     Active Substance: TRASTUZUMAB
     Route: 065
     Dates: start: 20200405
  14. GOSERELIN [Concomitant]
     Active Substance: GOSERELIN
     Indication: BREAST CANCER
     Route: 065
  15. PYROTINIB [Concomitant]
     Active Substance: PYROTINIB
     Indication: BREAST CANCER
     Dates: start: 20200704
  16. CARBOPLATIN. [Concomitant]
     Active Substance: CARBOPLATIN
     Indication: BREAST CANCER
     Dates: start: 20200223
  17. DOXORUBICIN [Concomitant]
     Active Substance: DOXORUBICIN
     Indication: BREAST CANCER
     Dates: start: 20200405
  18. CYCLOPHOSPHAMIDE. [Concomitant]
     Active Substance: CYCLOPHOSPHAMIDE
     Indication: BREAST CANCER
     Dates: start: 20200405

REACTIONS (2)
  - Hepatic cyst [Unknown]
  - Hepatic infarction [Unknown]
